FAERS Safety Report 13377624 (Version 1)
Quarter: 2017Q1

REPORT INFORMATION
  Report Type: Spontaneous
  Country: US (occurrence: US)
  Receive Date: 20170328
  Receipt Date: 20170328
  Transmission Date: 20170429
  Serious: No
  Sender: FDA-Public Use
  Company Number: US-B.I. PHARMACEUTICALS,INC./RIDGEFIELD-2017-BI-016736

PATIENT
  Sex: Female

DRUGS (1)
  1. COMBIVENT [Suspect]
     Active Substance: ALBUTEROL SULFATE\IPRATROPIUM BROMIDE
     Indication: PRODUCT USED FOR UNKNOWN INDICATION
     Dosage: FORM STRENGTH: 20 MCG / 100 MCG; DAILY DOSE: 80MCG /400MCG; FORMULATION: INHALATION SPRAY? ADMINISTR
     Route: 065
     Dates: start: 2016, end: 201702

REACTIONS (3)
  - Pneumonia [Unknown]
  - Bronchitis [Unknown]
  - Wheezing [Unknown]
